FAERS Safety Report 17114330 (Version 1)
Quarter: 2019Q4

REPORT INFORMATION
  Report Type: Spontaneous
  Country: US (occurrence: US)
  Receive Date: 20191112
  Receipt Date: 20191112
  Transmission Date: 20200122
  Serious: Yes (Hospitalization)
  Sender: FDA-Public Use
  Company Number: None

PATIENT
  Age: 68 Year
  Sex: Male
  Weight: 82.9 kg

DRUGS (1)
  1. AVELUMAB 800MG [Suspect]
     Active Substance: AVELUMAB
     Indication: GLIOBLASTOMA
     Dosage: ?          OTHER FREQUENCY: 14 DAYS ;?
     Route: 042
     Dates: start: 20190619, end: 20191106

REACTIONS (2)
  - Aphasia [None]
  - Asthenia [None]

NARRATIVE: CASE EVENT DATE: 20191109
